FAERS Safety Report 6358768-3 (Version None)
Quarter: 2009Q3

REPORT INFORMATION
  Report Type: 
  Country: None (occurrence: None)
  Receive Date: 20090916
  Receipt Date: 20090826
  Transmission Date: 20100115
  Serious: No
  Sender: FDA-Public Use
  Company Number: US-ABBOTT-09P-163-0588882-00

PATIENT
  Sex: Female
  Weight: 106.69 kg

DRUGS (11)
  1. TRILIPIX [Suspect]
     Indication: BLOOD TRIGLYCERIDES INCREASED
     Dates: start: 20090525, end: 20090721
  2. TRILIPIX [Suspect]
     Dates: start: 20090721
  3. CRESTOR [Concomitant]
     Indication: DRUG USE FOR UNKNOWN INDICATION
  4. LAVASA [Concomitant]
     Indication: DRUG USE FOR UNKNOWN INDICATION
  5. SYNTHROID [Concomitant]
     Indication: DRUG USE FOR UNKNOWN INDICATION
  6. METFORMIN HCL [Concomitant]
     Indication: DRUG USE FOR UNKNOWN INDICATION
  7. HUMALOG [Concomitant]
     Indication: DRUG USE FOR UNKNOWN INDICATION
     Dosage: 50/50
  8. VIT [Concomitant]
     Indication: DRUG USE FOR UNKNOWN INDICATION
  9. CITRACIL [Concomitant]
     Indication: DRUG USE FOR UNKNOWN INDICATION
  10. DIOVAN [Concomitant]
     Indication: DRUG USE FOR UNKNOWN INDICATION
  11. ATENOLOL [Concomitant]
     Indication: HEART RATE INCREASED

REACTIONS (9)
  - APPETITE DISORDER [None]
  - COUGH [None]
  - HEADACHE [None]
  - HYPOAESTHESIA [None]
  - LIP SWELLING [None]
  - MYALGIA [None]
  - OEDEMA PERIPHERAL [None]
  - SINUS CONGESTION [None]
  - WEIGHT INCREASED [None]
